FAERS Safety Report 13022649 (Version 1)
Quarter: 2016Q4

REPORT INFORMATION
  Report Type: Spontaneous
  Country: US (occurrence: US)
  Receive Date: 20161213
  Receipt Date: 20161213
  Transmission Date: 20170207
  Serious: Yes (Other)
  Sender: FDA-Public Use
  Company Number: US-SAGENTPRD-2016-US-000087

PATIENT
  Age: 68 Year
  Sex: Female

DRUGS (6)
  1. PENTAMIDINE [Concomitant]
     Active Substance: PENTAMIDINE
  2. DOXORUBICIN HYDROCHLORIDE INJECTION, USP [Suspect]
     Active Substance: DOXORUBICIN HYDROCHLORIDE
     Dosage: UNKNOWN
  3. DACARBAZINE. [Concomitant]
     Active Substance: DACARBAZINE
  4. BLEOMYCIN [Concomitant]
     Active Substance: BLEOMYCIN SULFATE
  5. VINBLASTINE [Concomitant]
     Active Substance: VINBLASTINE
  6. CORTICOSTEROID [Concomitant]
     Active Substance: CORTICOSTEROID NOS

REACTIONS (1)
  - Pneumocystis jirovecii pneumonia [Unknown]
